FAERS Safety Report 15180751 (Version 1)
Quarter: 2018Q3

REPORT INFORMATION
  Report Type: Spontaneous
  Country: US (occurrence: US)
  Receive Date: 20180723
  Receipt Date: 20180723
  Transmission Date: 20181010
  Serious: No
  Sender: FDA-Public Use
  Company Number: US-TEVA-2017-US-827133

PATIENT
  Sex: Female

DRUGS (1)
  1. LAMOTRIGINE. [Suspect]
     Active Substance: LAMOTRIGINE
     Indication: DEPRESSION
     Dosage: 150 MG A DAY
     Route: 048

REACTIONS (8)
  - Off label use [Unknown]
  - Nausea [Unknown]
  - Insomnia [Unknown]
  - Muscle twitching [Unknown]
  - Mental disorder [Unknown]
  - Headache [Unknown]
  - Feeling abnormal [Unknown]
  - Disturbance in attention [Unknown]
